FAERS Safety Report 16086824 (Version 3)
Quarter: 2019Q2

REPORT INFORMATION
  Report Type: Report from Study
  Country: US (occurrence: US)
  Receive Date: 20190318
  Receipt Date: 20190511
  Transmission Date: 20190711
  Serious: Yes (Hospitalization, Other)
  Sender: FDA-Public Use
  Company Number: US-UCBSA-2016016921

PATIENT
  Age: 68 Year
  Sex: Female

DRUGS (16)
  1. ESCITALOPRAM OXALATE. [Concomitant]
     Active Substance: ESCITALOPRAM OXALATE
     Indication: DEPRESSED MOOD
     Dosage: 20 MILLIGRAM, 2X/DAY (BID)
     Route: 048
     Dates: start: 20170824
  2. VITAMIN D3 [Concomitant]
     Active Substance: CHOLECALCIFEROL
     Indication: PRODUCT USED FOR UNKNOWN INDICATION
     Dosage: 400 UNITS , ONCE DAILY (QD)
     Route: 048
  3. MIDODRINE HCL [Concomitant]
     Active Substance: MIDODRINE HYDROCHLORIDE
     Indication: PRODUCT USED FOR UNKNOWN INDICATION
     Dosage: 2.5 MILLIGRAM, 2X/DAY (BID)
  4. ATORVASTATIN CALCIUM. [Concomitant]
     Active Substance: ATORVASTATIN CALCIUM
     Indication: HYPERCHOLESTEROLAEMIA
     Dosage: 20 MILLIGRAM ONCE AT BED TIME, ONCE DAILY (QD)
     Route: 048
  5. LACOSAMIDE. [Suspect]
     Active Substance: LACOSAMIDE
     Indication: SEIZURE
     Dosage: 150 MG, 2X/DAY (BID)
     Route: 048
     Dates: start: 2012, end: 2016
  6. KEPPRA [Suspect]
     Active Substance: LEVETIRACETAM
     Dosage: 1500 MILLIGRAM, 2X/DAY (BID) (750MG- 2 TABLET TWICE A DAY)
     Route: 048
     Dates: start: 20171122
  7. FOLIC ACID. [Concomitant]
     Active Substance: FOLIC ACID
     Indication: RHEUMATOID ARTHRITIS
  8. LACOSAMIDE. [Suspect]
     Active Substance: LACOSAMIDE
     Indication: PARTIAL SEIZURES
     Dosage: 200 MG, 2X/DAY (BID)
     Route: 048
     Dates: start: 20171003
  9. LACOSAMIDE. [Suspect]
     Active Substance: LACOSAMIDE
     Indication: EPILEPSY
  10. KEPPRA [Suspect]
     Active Substance: LEVETIRACETAM
     Indication: SEIZURE
     Dosage: 1500 MG, 2X/DAY (BID) (750MG  2 TABLETS TWICW A DAY)
     Route: 048
     Dates: start: 20130212
  11. VITAMIN D [Concomitant]
     Active Substance: VITAMIN D NOS
     Indication: PRODUCT USED FOR UNKNOWN INDICATION
     Dosage: 1000 MG, ONCE DAILY (QD)
     Route: 048
     Dates: start: 201501
  12. CALCIUM [Concomitant]
     Active Substance: CALCIUM
     Indication: PRODUCT USED FOR UNKNOWN INDICATION
     Dosage: 1200 MG, ONCE DAILY (QD)
  13. MULTI VITAMINS + MINERALS [Concomitant]
     Active Substance: MINERALS\VITAMINS
     Indication: PRODUCT USED FOR UNKNOWN INDICATION
     Dosage: 1 TABLET, ONCE DAILY (QD)
  14. FOLIC ACID. [Concomitant]
     Active Substance: FOLIC ACID
     Indication: FRONTOTEMPORAL DEMENTIA
     Dosage: 1 MG 3 TABLETS (3 MILLIGRAM, ONCE DAILY (QD)
     Route: 048
     Dates: start: 20171122
  15. FLUTICASONE PROPIONATE. [Concomitant]
     Active Substance: FLUTICASONE PROPIONATE
     Indication: PRODUCT USED FOR UNKNOWN INDICATION
     Dosage: 50 MICROGRAM, 2X/DAY (BID)
  16. CLOPIDOGREL BISULFATE. [Concomitant]
     Active Substance: CLOPIDOGREL BISULFATE
     Indication: DYSLIPIDAEMIA
     Dosage: 75 MILLIGRAM, ONCE DAILY (QD)
     Route: 048
     Dates: start: 20170811

REACTIONS (6)
  - Myocardial infarction [Not Recovered/Not Resolved]
  - Hip fracture [Recovered/Resolved]
  - Fall [Unknown]
  - Mental status changes [Unknown]
  - Asthenia [Not Recovered/Not Resolved]
  - Blood thyroid stimulating hormone increased [Unknown]

NARRATIVE: CASE EVENT DATE: 2016
